FAERS Safety Report 8117226-6 (Version None)
Quarter: 2012Q1

REPORT INFORMATION
  Report Type: 
  Country: None (occurrence: None)
  Receive Date: 20120206
  Receipt Date: 20120118
  Transmission Date: 20120608
  Serious: Yes (Hospitalization)
  Sender: FDA-Public Use
  Company Number: US-PFIZER INC-K200900247

PATIENT
  Age: 56 Year
  Sex: Male

DRUGS (20)
  1. AMOXICILLIN AND CLAVULANATE POTASSIUM [Concomitant]
     Dosage: UNK
  2. SENNA [Concomitant]
     Dosage: UNK
  3. ALTACE [Suspect]
     Dosage: 1.25 MG, 1X/DAY
     Route: 048
     Dates: start: 20090113, end: 20090122
  4. ISOSORBIDE MONONITRATE [Concomitant]
     Dosage: UNK
  5. UNIPHYLLIN UNICONTIN [Concomitant]
     Dosage: UNK
  6. MONTELUKAST [Concomitant]
     Dosage: UNK
  7. LACTULOSE [Concomitant]
     Dosage: UNK
  8. PARACETAMOL [Concomitant]
     Dosage: UNK
  9. AMINOPHYLLINE [Concomitant]
     Dosage: UNK
  10. SULPIRIDE [Concomitant]
     Dosage: UNK
  11. PARAFFIN [Concomitant]
     Dosage: UNK
  12. LORAZEPAM [Concomitant]
     Dosage: UNK
  13. FUROSEMIDE [Suspect]
     Dosage: 40 MG, UNK
     Route: 048
     Dates: start: 20090113, end: 20090122
  14. ACETYLSALICYLIC ACID [Concomitant]
     Dosage: UNK
  15. VALPROIC ACID [Concomitant]
     Dosage: UNK
  16. QUETIAPINE [Concomitant]
     Dosage: UNK
  17. PREDNISOLONE [Concomitant]
     Dosage: UNK
  18. IPRATROPIUM [Concomitant]
     Dosage: UNK
  19. SALBUTAMOL [Concomitant]
     Dosage: UNK
  20. ADVAIR DISKUS 100/50 [Concomitant]
     Dosage: UNK

REACTIONS (8)
  - SPUTUM DISCOLOURED [None]
  - HYPOTENSION [None]
  - SEPSIS [None]
  - LOWER RESPIRATORY TRACT INFECTION [None]
  - RENAL FAILURE ACUTE [None]
  - COUGH [None]
  - PULMONARY OEDEMA [None]
  - CYANOSIS [None]
